FAERS Safety Report 14677831 (Version 2)
Quarter: 2018Q2

REPORT INFORMATION
  Report Type: Spontaneous
  Country: US (occurrence: US)
  Receive Date: 20180326
  Receipt Date: 20180526
  Transmission Date: 20180711
  Serious: No
  Sender: FDA-Public Use
  Company Number: US-TEVA-2018-US-867013

PATIENT
  Sex: Female

DRUGS (1)
  1. OXYTROL [Suspect]
     Active Substance: OXYBUTYNIN
     Indication: HYPERTONIC BLADDER
     Route: 062
     Dates: start: 20180214, end: 20180218

REACTIONS (4)
  - Application site swelling [Recovering/Resolving]
  - Application site pruritus [Recovered/Resolved]
  - Application site erythema [Recovering/Resolving]
  - Drug ineffective [Unknown]
